FAERS Safety Report 21876844 (Version 5)
Quarter: 2023Q1

REPORT INFORMATION
  Report Type: Report from Study
  Country: US (occurrence: US)
  Receive Date: 20230118
  Receipt Date: 20230330
  Transmission Date: 20230417
  Serious: Yes (Hospitalization, Other)
  Sender: FDA-Public Use
  Company Number: US-ABBVIE-4273215

PATIENT
  Sex: Male

DRUGS (2)
  1. IMBRUVICA [Suspect]
     Active Substance: IBRUTINIB
     Indication: Non-Hodgkin^s lymphoma
     Dosage: LAST ADMIN DATE: OCT 2022, FORM STRENGTH: 140 MILLIGRAM
     Route: 048
     Dates: start: 20221020
  2. IMBRUVICA [Suspect]
     Active Substance: IBRUTINIB
     Indication: Non-Hodgkin^s lymphoma
     Dosage: FIRST ADMIN DATE: OCT 2022, FORM STRENGTH: 140 MILLIGRAM
     Route: 048

REACTIONS (6)
  - Appendicitis [Unknown]
  - Hypertension [Unknown]
  - Fatigue [Unknown]
  - Haemostasis [Unknown]
  - Chronic obstructive pulmonary disease [Unknown]
  - Contraindicated product administered [Unknown]
